FAERS Safety Report 17347911 (Version 1)
Quarter: 2020Q1

REPORT INFORMATION
  Report Type: Report from Study
  Country: US (occurrence: US)
  Receive Date: 20200129
  Receipt Date: 20200129
  Transmission Date: 20200409
  Serious: No
  Sender: FDA-Public Use
  Company Number: US-EXELIXIS-CABO-19025571

PATIENT
  Sex: Female

DRUGS (6)
  1. FIBER [Concomitant]
     Active Substance: PSYLLIUM HUSK
  2. LOPERAMIDE [Concomitant]
     Active Substance: LOPERAMIDE
  3. MIRALAX [Concomitant]
     Active Substance: POLYETHYLENE GLYCOL 3350
  4. LISINOPRIL. [Concomitant]
     Active Substance: LISINOPRIL
  5. CABOMETYX [Suspect]
     Active Substance: CABOZANTINIB S-MALATE
     Indication: RENAL CANCER
     Dosage: 60 MG, QD
     Route: 048
     Dates: start: 20191010
  6. BENADRYL [Concomitant]
     Active Substance: DIPHENHYDRAMINE HYDROCHLORIDE

REACTIONS (1)
  - Influenza [Recovering/Resolving]
